FAERS Safety Report 18614609 (Version 1)
Quarter: 2020Q4

REPORT INFORMATION
  Report Type: Spontaneous
  Country: US (occurrence: US)
  Receive Date: 20201214
  Receipt Date: 20201214
  Transmission Date: 20210114
  Serious: No
  Sender: FDA-Public Use
  Company Number: US-ABBVIE-20K-163-3527863-00

PATIENT
  Age: 92 Year
  Sex: Female
  Weight: 75.82 kg

DRUGS (4)
  1. LORAZEPAM. [Concomitant]
     Active Substance: LORAZEPAM
     Indication: SLEEP DISORDER
     Dosage: ONCE DAILY AS NEEDED FOR SLEEP
     Route: 048
  2. FLUVASTATIN [Concomitant]
     Active Substance: FLUVASTATIN SODIUM
     Indication: BLOOD CHOLESTEROL INCREASED
     Route: 048
  3. AMLODIPINE [Concomitant]
     Active Substance: AMLODIPINE BESYLATE
     Indication: BLOOD PRESSURE INCREASED
     Route: 048
  4. IMBRUVICA [Suspect]
     Active Substance: IBRUTINIB
     Indication: EXTRANODAL MARGINAL ZONE B-CELL LYMPHOMA (MALT TYPE)
     Route: 048
     Dates: start: 20200709, end: 20200730

REACTIONS (8)
  - Painful respiration [Recovering/Resolving]
  - Palpitations [Recovering/Resolving]
  - Breast pain [Recovering/Resolving]
  - Contusion [Recovering/Resolving]
  - Stomatitis [Recovered/Resolved]
  - Neck pain [Recovering/Resolving]
  - Pharyngeal contusion [Recovering/Resolving]
  - Back pain [Recovering/Resolving]

NARRATIVE: CASE EVENT DATE: 202007
